FAERS Safety Report 10057882 (Version 1)
Quarter: 2014Q2

REPORT INFORMATION
  Report Type: Spontaneous
  Country: US (occurrence: None)
  Receive Date: 20140403
  Receipt Date: 20140403
  Transmission Date: 20141212
  Serious: Yes (Death)
  Sender: FDA-Public Use
  Company Number: None

PATIENT
  Age: 22 Year
  Sex: Female
  Weight: 53.98 kg

DRUGS (1)
  1. DURAGESIC [Suspect]
     Indication: DRUG ABUSE
     Route: 062

REACTIONS (7)
  - Unresponsive to stimuli [None]
  - Overdose [None]
  - Brain oedema [None]
  - Brain injury [None]
  - Anoxia [None]
  - No therapeutic response [None]
  - Brain death [None]
